FAERS Safety Report 8050682-0 (Version None)
Quarter: 2012Q1

REPORT INFORMATION
  Report Type: 
  Country: None (occurrence: None)
  Receive Date: 20120117
  Receipt Date: 20120117
  Transmission Date: 20120608
  Serious: Yes (Hospitalization)
  Sender: FDA-Public Use
  Company Number: None

PATIENT
  Sex: Female
  Weight: 56.699 kg

DRUGS (1)
  1. THYROID TAB [Suspect]
     Indication: HYPOTHYROIDISM
     Dates: start: 20080315, end: 20111215

REACTIONS (8)
  - HYPERTENSION [None]
  - PALPITATIONS [None]
  - FEELING ABNORMAL [None]
  - VISION BLURRED [None]
  - PAIN IN EXTREMITY [None]
  - DIARRHOEA [None]
  - ARRHYTHMIA [None]
  - NERVOUSNESS [None]
